FAERS Safety Report 9960591 (Version 1)
Quarter: 2014Q1

REPORT INFORMATION
  Report Type: Report from Study
  Country: US (occurrence: US)
  Receive Date: 20140305
  Receipt Date: 20140305
  Transmission Date: 20141002
  Serious: No
  Sender: FDA-Public Use
  Company Number: US-ABBVIE-13P-163-1109840-00

PATIENT
  Age: 64 Year
  Sex: Female
  Weight: 62.65 kg

DRUGS (16)
  1. HUMIRA [Suspect]
     Indication: CROHN^S DISEASE
     Dates: start: 20130523, end: 20130523
  2. HUMIRA [Suspect]
     Dates: start: 20130606, end: 20130606
  3. HUMIRA [Suspect]
  4. LEVOTHYROXINE [Concomitant]
     Indication: THYROID DISORDER
  5. LISINOPRIL [Concomitant]
     Indication: BLOOD PRESSURE
  6. OMEPRAZOLE [Concomitant]
     Indication: DYSPEPSIA
  7. ENTOCORT [Concomitant]
     Indication: CROHN^S DISEASE
  8. WELLBUTRIN [Concomitant]
     Indication: DEPRESSION
  9. BUSPAR [Concomitant]
     Indication: DEPRESSION
  10. DEPLIN [Concomitant]
     Indication: DRUG THERAPY ENHANCEMENT
  11. POTASSIUM [Concomitant]
     Indication: ELECTROLYTE SUBSTITUTION THERAPY
  12. VITAMIN B12 NOS [Concomitant]
     Indication: CROHN^S DISEASE
     Route: 050
  13. NOVOLOG [Concomitant]
     Indication: DIABETES MELLITUS
  14. LANTUS [Concomitant]
     Indication: DIABETES MELLITUS
  15. SORIATANE [Concomitant]
     Indication: SKIN PAPILLOMA
  16. PHENERGAN [Concomitant]
     Indication: NAUSEA

REACTIONS (2)
  - Injection site pain [Not Recovered/Not Resolved]
  - Injection site haemorrhage [Not Recovered/Not Resolved]
